FAERS Safety Report 6968798-6 (Version None)
Quarter: 2010Q3

REPORT INFORMATION
  Report Type: 
  Country: None (occurrence: None)
  Receive Date: 20100907
  Receipt Date: 20100826
  Transmission Date: 20110219
  Serious: Yes (Disabling, Other)
  Sender: FDA-Public Use
  Company Number: IL-SANOFI-AVENTIS-2010SA050927

PATIENT
  Age: 60 Year
  Sex: Female

DRUGS (3)
  1. FUROSEMIDE [Suspect]
     Indication: PRODUCT USED FOR UNKNOWN INDICATION
     Dosage: 40 TO 60 MG DAILY THEN INCREASED TO AROUND 1000 MG/DAY
     Route: 065
     Dates: start: 19660101
  2. ORLISTAT [Suspect]
     Indication: PRODUCT USED FOR UNKNOWN INDICATION
     Dosage: 120 TO 240 MG/DAY, OVER THE PREVIOUS 3 YEARS.
     Route: 065
  3. ANTIINFLAMMATORY/ANTIRHEUMATIC NON-STEROIDS [Suspect]

REACTIONS (6)
  - DRUG ABUSE [None]
  - GLOMERULOSCLEROSIS [None]
  - KIDNEY FIBROSIS [None]
  - NEPHROCALCINOSIS [None]
  - RENAL FAILURE [None]
  - RENAL TUBULAR NECROSIS [None]
